FAERS Safety Report 4315522-1 (Version None)
Quarter: 2004Q1

REPORT INFORMATION
  Report Type: 
  Country: None (occurrence: None)
  Receive Date: 20040309
  Receipt Date: 20040224
  Transmission Date: 20041129
  Serious: Yes (Hospitalization)
  Sender: FDA-Public Use
  Company Number: US_0402101119

PATIENT
  Age: 60 Year
  Sex: Female
  Weight: 112 kg

DRUGS (1)
  1. HUMULIN N [Suspect]
     Dates: start: 19840101

REACTIONS (8)
  - BACK PAIN [None]
  - CARPAL TUNNEL SYNDROME [None]
  - HYPOAESTHESIA [None]
  - INTERVERTEBRAL DISC PROTRUSION [None]
  - NECK PAIN [None]
  - POST PROCEDURAL COMPLICATION [None]
  - POSTOPERATIVE INFECTION [None]
  - SPINAL CORD NEOPLASM [None]
